FAERS Safety Report 11359715 (Version 1)
Quarter: 2015Q3

REPORT INFORMATION
  Report Type: Report from Study
  Country: US (occurrence: US)
  Receive Date: 20150808
  Receipt Date: 20150808
  Transmission Date: 20151125
  Serious: No
  Sender: FDA-Public Use
  Company Number: PHEH2015US008169

PATIENT
  Age: 62 Year
  Sex: Female
  Weight: 63.39 kg

DRUGS (1)
  1. GILENYA [Suspect]
     Active Substance: FINGOLIMOD HYDROCHLORIDE
     Indication: MULTIPLE SCLEROSIS
     Dosage: 0.5 MG, QD
     Route: 048
     Dates: start: 20150423

REACTIONS (2)
  - Diarrhoea [Recovered/Resolved]
  - Fatigue [Recovering/Resolving]

NARRATIVE: CASE EVENT DATE: 20150423
